FAERS Safety Report 8184198-8 (Version None)
Quarter: 2012Q1

REPORT INFORMATION
  Report Type: 
  Country: None (occurrence: None)
  Receive Date: 20120301
  Receipt Date: 20120217
  Transmission Date: 20120608
  Serious: Yes (Hospitalization)
  Sender: FDA-Public Use
  Company Number: TPA2012A00923

PATIENT
  Age: 65 Year
  Sex: Male
  Weight: 99.7913 kg

DRUGS (7)
  1. FAMOTIDINE [Concomitant]
  2. DEXILANT [Suspect]
     Indication: GASTROOESOPHAGEAL REFLUX DISEASE
     Dosage: 60 MG, PER ORAL
     Route: 048
     Dates: start: 20110108, end: 20110108
  3. DEXILANT [Suspect]
     Indication: GASTROOESOPHAGEAL REFLUX DISEASE
     Dosage: 60 MG, PER ORAL
     Route: 048
     Dates: start: 20120217
  4. TRAMADOL (TRAMADOL) (TABLETS) [Concomitant]
  5. LIPITOR [Concomitant]
  6. ASPIRIN [Concomitant]
  7. LISINOPRIL [Concomitant]

REACTIONS (4)
  - ASTHENIA [None]
  - ARTERIAL OCCLUSIVE DISEASE [None]
  - DEVICE OCCLUSION [None]
  - DYSPNOEA [None]
